FAERS Safety Report 5292389-9 (Version None)
Quarter: 2007Q2

REPORT INFORMATION
  Report Type: 
  Country: None (occurrence: None)
  Receive Date: 20070410
  Receipt Date: 20070329
  Transmission Date: 20071010
  Serious: Yes (Hospitalization, Other)
  Sender: FDA-Public Use
  Company Number: US-PFIZER INC-2006089756

PATIENT
  Sex: Female

DRUGS (6)
  1. GABAPENTIN [Suspect]
     Indication: BIPOLAR DISORDER
     Dosage: DAILY DOSE:400MG
     Route: 048
  2. ZYPREXA [Concomitant]
  3. LORAZEPAM [Concomitant]
  4. PROZAC [Concomitant]
  5. SYNTHROID [Concomitant]
     Dosage: DAILY DOSE:.075MG
     Route: 048
  6. PROPRANOLOL [Concomitant]

REACTIONS (8)
  - APNOEA [None]
  - COMA [None]
  - DEPRESSION [None]
  - DRUG INEFFECTIVE [None]
  - INTENTIONAL OVERDOSE [None]
  - MYALGIA [None]
  - SUICIDAL IDEATION [None]
  - SUICIDE ATTEMPT [None]
